FAERS Safety Report 16955644 (Version 1)
Quarter: 2019Q4

REPORT INFORMATION
  Report Type: Spontaneous
  Country: US (occurrence: US)
  Receive Date: 20191024
  Receipt Date: 20191024
  Transmission Date: 20200122
  Serious: No
  Sender: FDA-Public Use
  Company Number: US-PFIZER INC-2019169546

PATIENT
  Age: 6 Year
  Sex: Male
  Weight: 18.14 kg

DRUGS (3)
  1. GENOTROPIN [Suspect]
     Active Substance: SOMATROPIN
     Indication: GROWTH HORMONE DEFICIENCY
     Dosage: 0.8 MG, DAILY
     Dates: start: 20190323
  2. GENOTROPIN [Suspect]
     Active Substance: SOMATROPIN
     Dosage: 1.0 MG, DAILY [0.8 MG ALT WITH 1.0 MG DAILY]
     Dates: start: 201903
  3. GENOTROPIN [Suspect]
     Active Substance: SOMATROPIN
     Dosage: 0.8 MG, ALTERNATE DAY [0.8 MG ALT WITH 1.0 MG DAILY]
     Dates: start: 201903

REACTIONS (4)
  - Gait disturbance [Unknown]
  - Wrong technique in device usage process [Unknown]
  - Nipple disorder [Unknown]
  - Pain in extremity [Unknown]
